FAERS Safety Report 18393088 (Version 1)
Quarter: 2020Q4

REPORT INFORMATION
  Report Type: Report from Study
  Country: US (occurrence: US)
  Receive Date: 20201016
  Receipt Date: 20201016
  Transmission Date: 20210114
  Serious: Yes (Other)
  Sender: FDA-Public Use
  Company Number: US-JAZZ-2020-US-013427

PATIENT
  Sex: Male

DRUGS (23)
  1. FUROSEMIDE. [Concomitant]
     Active Substance: FUROSEMIDE
     Indication: PRODUCT USED FOR UNKNOWN INDICATION
     Dosage: UNK
     Dates: start: 20140910
  2. BENICAR HCT [Concomitant]
     Active Substance: HYDROCHLOROTHIAZIDE\OLMESARTAN MEDOXOMIL
     Indication: PRODUCT USED FOR UNKNOWN INDICATION
     Dosage: UNK
     Dates: start: 20140603, end: 20160531
  3. CLOPIDOGREL [Concomitant]
     Active Substance: CLOPIDOGREL BISULFATE
     Indication: PRODUCT USED FOR UNKNOWN INDICATION
  4. DOCUSATE SODIUM. [Concomitant]
     Active Substance: DOCUSATE SODIUM
     Indication: PRODUCT USED FOR UNKNOWN INDICATION
     Dosage: UNK
     Dates: end: 20200131
  5. LOSARTAN POTASSIUM. [Concomitant]
     Active Substance: LOSARTAN POTASSIUM
     Indication: PRODUCT USED FOR UNKNOWN INDICATION
     Dosage: UNK
     Dates: end: 20200131
  6. HYALURONIC ACID [Concomitant]
     Active Substance: HYALURONIC ACID
     Indication: PRODUCT USED FOR UNKNOWN INDICATION
     Dosage: UNK
     Dates: start: 20140910
  7. FLUTICASONE PROPIONATE. [Concomitant]
     Active Substance: FLUTICASONE PROPIONATE
     Indication: PRODUCT USED FOR UNKNOWN INDICATION
  8. MEDROL [Concomitant]
     Active Substance: METHYLPREDNISOLONE
     Indication: PRODUCT USED FOR UNKNOWN INDICATION
     Dosage: UNK
     Dates: end: 20201031
  9. VALSARTAN. [Concomitant]
     Active Substance: VALSARTAN
     Indication: PRODUCT USED FOR UNKNOWN INDICATION
  10. FEVERFEW [TANACETUM PARTHENIUM] [Concomitant]
     Active Substance: FEVERFEW\TANACETUM PARTHENIUM
     Indication: PRODUCT USED FOR UNKNOWN INDICATION
     Dosage: UNK
     Dates: start: 20140101, end: 20200131
  11. CITALOPRAM [Concomitant]
     Active Substance: CITALOPRAM HYDROBROMIDE
     Indication: PRODUCT USED FOR UNKNOWN INDICATION
     Dosage: UNK
     Dates: start: 20140604, end: 20200131
  12. XYREM [Suspect]
     Active Substance: SODIUM OXYBATE
     Indication: NARCOLEPSY
     Dosage: 2.25 GRAM, BID
     Route: 048
     Dates: start: 201408, end: 201410
  13. XYREM [Suspect]
     Active Substance: SODIUM OXYBATE
     Dosage: DOSE ADJUSTMENT
     Route: 048
     Dates: start: 201410, end: 201701
  14. GABAPENTIN. [Concomitant]
     Active Substance: GABAPENTIN
     Indication: PRODUCT USED FOR UNKNOWN INDICATION
     Dosage: UNK
     Dates: start: 20140910, end: 20160531
  15. CARVEDILOL. [Concomitant]
     Active Substance: CARVEDILOL
     Indication: PRODUCT USED FOR UNKNOWN INDICATION
     Dosage: UNK
     Dates: start: 20140603
  16. PANTOPRAZOLE SODIUM. [Concomitant]
     Active Substance: PANTOPRAZOLE SODIUM
     Indication: PRODUCT USED FOR UNKNOWN INDICATION
     Dosage: UNK
     Dates: end: 20200131
  17. XYREM [Suspect]
     Active Substance: SODIUM OXYBATE
     Dosage: 2.25 GRAM, BID
     Route: 048
     Dates: start: 201703
  18. OMEPRAZOLE. [Concomitant]
     Active Substance: OMEPRAZOLE
     Indication: PRODUCT USED FOR UNKNOWN INDICATION
     Dosage: UNK
     Dates: start: 20140910, end: 20160531
  19. PROVIGIL [Concomitant]
     Active Substance: MODAFINIL
     Indication: PRODUCT USED FOR UNKNOWN INDICATION
     Dosage: UNK
     Dates: start: 20140910, end: 20160531
  20. BENICAR HCT [Concomitant]
     Active Substance: HYDROCHLOROTHIAZIDE\OLMESARTAN MEDOXOMIL
     Dosage: UNK
     Dates: end: 20200131
  21. HYDRALAZINE [Concomitant]
     Active Substance: HYDRALAZINE HYDROCHLORIDE
     Indication: PRODUCT USED FOR UNKNOWN INDICATION
     Dosage: UNK
     Dates: start: 20140603, end: 20200331
  22. IPRATROPIUM [Concomitant]
     Active Substance: IPRATROPIUM
     Indication: PRODUCT USED FOR UNKNOWN INDICATION
  23. OMEPRAZOLE. [Concomitant]
     Active Substance: OMEPRAZOLE
     Dosage: UNK
     Dates: end: 20200131

REACTIONS (17)
  - Fall [Recovered/Resolved]
  - Asthma [Unknown]
  - Lung cyst [Not Recovered/Not Resolved]
  - Transient ischaemic attack [Unknown]
  - Neck pain [Recovering/Resolving]
  - Vitamin D decreased [Unknown]
  - Goitre [Recovering/Resolving]
  - Overweight [Not Recovered/Not Resolved]
  - Headache [Recovering/Resolving]
  - Gastrooesophageal reflux disease [Unknown]
  - Intervertebral disc disorder [Not Recovered/Not Resolved]
  - Liver disorder [Unknown]
  - Chronic kidney disease [Not Recovered/Not Resolved]
  - Occipital neuralgia [Recovering/Resolving]
  - Arthritis [Not Recovered/Not Resolved]
  - Blood pressure increased [Recovering/Resolving]
  - Joint injury [Recovering/Resolving]
